FAERS Safety Report 23066602 (Version 1)
Quarter: 2023Q4

REPORT INFORMATION
  Report Type: Spontaneous
  Country: US (occurrence: US)
  Receive Date: 20231015
  Receipt Date: 20231015
  Transmission Date: 20240109
  Serious: Yes (Death, Other)
  Sender: FDA-Public Use
  Company Number: US-REGENERON PHARMACEUTICALS, INC.-2023-124917

PATIENT
  Sex: Male

DRUGS (2)
  1. EYLEA [Suspect]
     Active Substance: AFLIBERCEPT
     Indication: Diabetic retinopathy
     Dosage: 2 MG, EVERY 4-5 WEEKS, FORMULATION: PRE-FILLED SYRINGE, ONE EYE (GERRESHEIMER)
     Dates: start: 202010, end: 20230515
  2. EYLEA [Suspect]
     Active Substance: AFLIBERCEPT
     Indication: Diabetic retinal oedema
     Dosage: 2 MG, EVERY 4-5 WEEKS, FORMULATION: PRE-FILLED SYRINGE, OTHER EYE (GERRESHEIMER)
     Dates: start: 202010, end: 20230516

REACTIONS (1)
  - Death [Fatal]

NARRATIVE: CASE EVENT DATE: 20230717
